FAERS Safety Report 8186713-7 (Version None)
Quarter: 2012Q1

REPORT INFORMATION
  Report Type: 
  Country: None (occurrence: None)
  Receive Date: 20120306
  Receipt Date: 20120227
  Transmission Date: 20120608
  Serious: Yes (Hospitalization, Disabling)
  Sender: FDA-Public Use
  Company Number: FR-ASTELLAS-2012EU000825

PATIENT
  Sex: Female
  Weight: 66 kg

DRUGS (6)
  1. AMLODIPINE BESYLATE [Concomitant]
     Indication: HYPERTENSION
     Dosage: UNK
     Route: 065
  2. ISOPTIN [Concomitant]
     Dosage: UNK
     Route: 065
  3. OMEPRAZOLE [Concomitant]
     Dosage: UNK
     Route: 065
  4. VESICARE [Suspect]
     Indication: NOCTURIA
     Dosage: 1 DF, UID/QD
     Route: 048
     Dates: start: 20101103, end: 20111107
  5. ATACAND [Concomitant]
     Dosage: UNK
     Route: 065
  6. KETOPROFEN [Concomitant]
     Dosage: UNK
     Route: 065

REACTIONS (1)
  - COLITIS ISCHAEMIC [None]
